FAERS Safety Report 22925332 (Version 3)
Quarter: 2024Q2

REPORT INFORMATION
  Report Type: Report from Study
  Country: US (occurrence: US)
  Receive Date: 20230908
  Receipt Date: 20240529
  Transmission Date: 20240716
  Serious: Yes (Death)
  Sender: FDA-Public Use
  Company Number: US-PFIZER INC-PV202300150402

PATIENT
  Age: 49 Year
  Sex: Male

DRUGS (7)
  1. FENTANYL CITRATE [Suspect]
     Active Substance: FENTANYL CITRATE
     Dosage: UNK
  2. ISOTONITAZENE [Suspect]
     Active Substance: ISOTONITAZENE
     Dosage: UNK
  3. HEROIN [Suspect]
     Active Substance: DIAMORPHINE
     Dosage: UNK
  4. XYLAZINE [Suspect]
     Active Substance: XYLAZINE
     Dosage: UNK
  5. MORPHINE [Concomitant]
     Active Substance: MORPHINE
     Dosage: UNK
  6. NALOXONE [Concomitant]
     Active Substance: NALOXONE
     Dosage: UNK
  7. CODEINE [Concomitant]
     Active Substance: CODEINE
     Dosage: UNK

REACTIONS (2)
  - Toxicity to various agents [Fatal]
  - Accident [Fatal]
